FAERS Safety Report 22811519 (Version 3)
Quarter: 2024Q3

REPORT INFORMATION
  Report Type: Spontaneous
  Country: US (occurrence: US)
  Receive Date: 20230810
  Receipt Date: 20240827
  Transmission Date: 20241016
  Serious: No
  Sender: ALEXION PHARMACEUTICALS
  Company Number: US-ALXN-A202310156

PATIENT
  Age: 26 Year
  Sex: Female

DRUGS (2)
  1. ULTOMIRIS [Suspect]
     Active Substance: RAVULIZUMAB-CWVZ
     Indication: Atypical haemolytic uraemic syndrome
     Dosage: UNK, EVERY 8 WEEKS
     Route: 042
     Dates: start: 20200915
  2. SOLIRIS [Suspect]
     Active Substance: ECULIZUMAB
     Indication: Atypical haemolytic uraemic syndrome
     Dosage: UNK,EVERY 4 WEEKS
     Route: 065
     Dates: start: 2019, end: 202009

REACTIONS (10)
  - Abdominal discomfort [Unknown]
  - Respiratory fume inhalation disorder [Recovering/Resolving]
  - Off label use [Unknown]
  - Anaemia [Unknown]
  - Asthenia [Unknown]
  - Headache [Unknown]
  - Peripheral swelling [Unknown]
  - Depression [Unknown]
  - Fatigue [Unknown]
  - Dyspepsia [Unknown]

NARRATIVE: CASE EVENT DATE: 20221201
